FAERS Safety Report 24195786 (Version 3)
Quarter: 2024Q3

REPORT INFORMATION
  Report Type: Spontaneous
  Country: CA (occurrence: CA)
  Receive Date: 20240809
  Receipt Date: 20240829
  Transmission Date: 20241017
  Serious: Yes (Hospitalization, Other)
  Sender: PFIZER
  Company Number: CA-MLMSERVICE-20240729-PI145965-00082-1

PATIENT
  Age: 58 Year
  Sex: Male

DRUGS (6)
  1. CARBOPLATIN [Suspect]
     Active Substance: CARBOPLATIN
     Indication: Small cell lung cancer extensive stage
     Dosage: 681 MG, CYCLIC,DAY 1, EVERY 21 DAYS, THREE CYCLES
     Route: 042
     Dates: start: 201911
  2. CARBOPLATIN [Suspect]
     Active Substance: CARBOPLATIN
     Indication: Chemotherapy
     Dosage: 563 MG, CYCLIC,DAY 1, FINAL CYCLE OF THIS PHASE
     Route: 042
     Dates: end: 202001
  3. ATEZOLIZUMAB [Suspect]
     Active Substance: ATEZOLIZUMAB
     Indication: Small cell lung cancer extensive stage
     Dosage: 1200 MG, CYCLIC,DAY 1, EVERY 21 DAYS (INDUCTION, FOUR CYCLES), EVERY 21 DAYS (MAINTENANCE)
     Route: 042
     Dates: start: 201911
  4. ATEZOLIZUMAB [Suspect]
     Active Substance: ATEZOLIZUMAB
     Indication: Chemotherapy
  5. ETOPOSIDE [Suspect]
     Active Substance: ETOPOSIDE
     Indication: Small cell lung cancer extensive stage
     Dosage: DAY 1-3, EVERY 21 DAYS
     Route: 048
     Dates: start: 201911
  6. ETOPOSIDE [Suspect]
     Active Substance: ETOPOSIDE
     Indication: Chemotherapy
     Dosage: 1-3, FINAL CYCLE OF THIS PHASE
     Route: 048
     Dates: end: 202001

REACTIONS (2)
  - Febrile neutropenia [Unknown]
  - Off label use [Unknown]

NARRATIVE: CASE EVENT DATE: 20191101
